FAERS Safety Report 4780057-9 (Version None)
Quarter: 2005Q3

REPORT INFORMATION
  Report Type: 
  Country: None (occurrence: None)
  Receive Date: 20050914
  Receipt Date: 20050429
  Transmission Date: 20060218
  Serious: Yes (Other)
  Sender: FDA-Public Use
  Company Number: 163-20785-05050002

PATIENT
  Age: 46 Year
  Sex: Male

DRUGS (2)
  1. THALOMID [Suspect]
     Indication: METASTASES TO CENTRAL NERVOUS SYSTEM
     Dosage: 200 MG, DAILY, ORAL
     Route: 048
     Dates: start: 20050209
  2. STEROID [Concomitant]

REACTIONS (3)
  - CONVULSION [None]
  - DISEASE PROGRESSION [None]
  - UPPER RESPIRATORY TRACT INFECTION [None]
